FAERS Safety Report 6108700-2 (Version None)
Quarter: 2009Q1

REPORT INFORMATION
  Report Type: 
  Country: None (occurrence: None)
  Receive Date: 20090306
  Receipt Date: 20090107
  Transmission Date: 20090719
  Serious: Yes (Death)
  Sender: FDA-Public Use
  Company Number: DSA_62490_2009

PATIENT
  Age: 38 Year
  Sex: Male

DRUGS (2)
  1. ACETAMINOPHEN W/ CODEINE [Suspect]
     Indication: DRUG USE FOR UNKNOWN INDICATION
     Dosage: 30 MG/300 MG ORAL
     Route: 048
  2. METFORMIN HCL [Suspect]
     Indication: DRUG USE FOR UNKNOWN INDICATION
     Dosage: DF ORAL
     Route: 048

REACTIONS (8)
  - ACIDOSIS [None]
  - CARDIAC ARREST [None]
  - COMPLETED SUICIDE [None]
  - CONTINUOUS HAEMODIAFILTRATION [None]
  - ELECTROMECHANICAL DISSOCIATION [None]
  - GENERAL PHYSICAL HEALTH DETERIORATION [None]
  - HYPOGLYCAEMIA [None]
  - POISONING DELIBERATE [None]
